FAERS Safety Report 6079644-X (Version None)
Quarter: 2009Q1

REPORT INFORMATION
  Report Type: 
  Country: None (occurrence: None)
  Receive Date: 20090212
  Receipt Date: 20090203
  Transmission Date: 20090719
  Serious: Yes (Hospitalization)
  Sender: FDA-Public Use
  Company Number: 167901

PATIENT
  Age: 47 Year
  Sex: Male

DRUGS (6)
  1. CARBOPLATIN [Suspect]
     Indication: NON-SMALL CELL LUNG CANCER
     Dosage: 800 MG, 1 EVERY 3  WEEKS, INTRAVENOUS
     Route: 042
     Dates: start: 20081027
  2. PACLITAXEL [Suspect]
     Indication: NON-SMALL CELL LUNG CANCER
     Dosage: 330 MG, 1 EVERY 3 WEEKS, INTRAVENOUS
     Route: 042
     Dates: start: 20081027
  3. (BEVACIZUMAB) [Suspect]
     Indication: NON-SMALL CELL LUNG CANCER
     Dosage: 900 MG, 1 EVERY 3 WEEKS, INTRAVENOUS
     Route: 042
  4. (DOMPERIDONE) [Concomitant]
  5. (CYCLIZINE) [Concomitant]
  6. (LEVOMEPROMAZINE) [Concomitant]

REACTIONS (4)
  - HEADACHE [None]
  - LOWER RESPIRATORY TRACT INFECTION [None]
  - PLEURAL EFFUSION [None]
  - SPUTUM DISCOLOURED [None]
